FAERS Safety Report 21637684 (Version 1)
Quarter: 2022Q4

REPORT INFORMATION
  Report Type: Report from Study
  Country: BR (occurrence: BR)
  Receive Date: 20221124
  Receipt Date: 20221124
  Transmission Date: 20230113
  Serious: Yes (Other)
  Sender: FDA-Public Use
  Company Number: BR-CELLTRION INC.-2022BR019690

PATIENT

DRUGS (4)
  1. INFLIXIMAB [Suspect]
     Active Substance: INFLIXIMAB
     Indication: Spondylitis
     Dosage: 4 AMPOULES EVERY 2 MONTHS
     Route: 042
     Dates: end: 20221116
  2. INFLIXIMAB [Suspect]
     Active Substance: INFLIXIMAB
     Indication: Rheumatic disorder
  3. INFLIXIMAB [Suspect]
     Active Substance: INFLIXIMAB
     Indication: Osteoporosis
  4. INFLIXIMAB [Suspect]
     Active Substance: INFLIXIMAB
     Indication: Hysterectomy

REACTIONS (4)
  - Back pain [Unknown]
  - Product availability issue [Unknown]
  - Therapy interrupted [Unknown]
  - Off label use [Unknown]
